FAERS Safety Report 4285851-9 (Version None)
Quarter: 2004Q1

REPORT INFORMATION
  Report Type: 
  Country: None (occurrence: None)
  Receive Date: 20040205
  Receipt Date: 20040126
  Transmission Date: 20041129
  Serious: Yes (Other)
  Sender: FDA-Public Use
  Company Number: 200410660US

PATIENT
  Sex: Female

DRUGS (6)
  1. ALLEGRA-D [Suspect]
     Indication: BRONCHITIS
     Dosage: DOSE: 60/120
     Route: 048
     Dates: start: 20040119, end: 20040119
  2. ALLEGRA-D [Suspect]
     Indication: COUGH
     Dosage: DOSE: 60/120
     Route: 048
     Dates: start: 20040119, end: 20040119
  3. AVELOX [Suspect]
     Indication: RESPIRATORY TRACT CONGESTION
     Route: 048
     Dates: start: 20040119, end: 20040119
  4. ROBITUSSIN [Suspect]
     Dosage: DOSE: UNK
     Dates: start: 20040119, end: 20040119
  5. ASPIRIN [Concomitant]
  6. LESCOL [Concomitant]

REACTIONS (5)
  - BALANCE DISORDER [None]
  - DIZZINESS [None]
  - GAIT DISTURBANCE [None]
  - HYPOTENSION [None]
  - LOSS OF CONSCIOUSNESS [None]
